FAERS Safety Report 10912296 (Version 1)
Quarter: 2015Q1

REPORT INFORMATION
  Report Type: Report from Study
  Country: JP (occurrence: None)
  Receive Date: 20150310
  Receipt Date: 20150310
  Transmission Date: 20150721
  Serious: Yes (Death, Other)
  Sender: FDA-Public Use
  Company Number: 2015-10841

PATIENT
  Age: 75 Year
  Sex: Male
  Weight: 69.7 kg

DRUGS (4)
  1. AIMIX (AMLODIPINE BESILATE, IRBESARTAN) [Concomitant]
  2. FAMOTER (ACETYLSALICYLIC ACID, ALUMINIUM, GLYCINATE, MAGNESIUM CARBONATE) [Concomitant]
  3. AFLIBERCEPT [Suspect]
     Active Substance: AFLIBERCEPT
     Indication: POLYPOIDAL CHOROIDAL VASCULOPATHY
     Route: 031
     Dates: start: 20150212, end: 20150212
  4. CARVEDILOL (CARVEDILOL [Concomitant]

REACTIONS (1)
  - Sudden cardiac death [None]

NARRATIVE: CASE EVENT DATE: 201502
